FAERS Safety Report 23272225 (Version 1)
Quarter: 2023Q4

REPORT INFORMATION
  Report Type: Report from Study
  Country: US (occurrence: US)
  Receive Date: 20231207
  Receipt Date: 20231207
  Transmission Date: 20240109
  Serious: Yes (Other)
  Sender: FDA-Public Use
  Company Number: US-BIOGEN-2023BI01238270

PATIENT
  Age: 65 Year
  Sex: Female

DRUGS (1)
  1. TYSABRI [Suspect]
     Active Substance: NATALIZUMAB
     Indication: Multiple sclerosis
     Route: 050
     Dates: start: 20210525

REACTIONS (7)
  - Chronic kidney disease [Unknown]
  - Malaise [Unknown]
  - General physical health deterioration [Unknown]
  - Aphasia [Unknown]
  - Secondary progressive multiple sclerosis [Unknown]
  - Hypersomnia [Unknown]
  - Laryngitis [Unknown]

NARRATIVE: CASE EVENT DATE: 20231015
